FAERS Safety Report 6099056-2 (Version None)
Quarter: 2009Q1

REPORT INFORMATION
  Report Type: 
  Country: None (occurrence: None)
  Receive Date: 20090302
  Receipt Date: 20090225
  Transmission Date: 20090719
  Serious: Yes (Other)
  Sender: FDA-Public Use
  Company Number: US-BAXTER-2007BH003505

PATIENT
  Age: 9 Year
  Sex: Male
  Weight: 47 kg

DRUGS (3)
  1. ADVATE [Suspect]
     Indication: PROPHYLAXIS
     Dosage: DOSE UNIT:UNITS PER KILOGRAM
     Route: 042
     Dates: start: 20070328
  2. ADVATE [Suspect]
     Dosage: DOSE UNIT:UNITS PER KILOGRAM
     Route: 042
     Dates: start: 20070328
  3. ADVATE [Suspect]
     Indication: PROPHYLAXIS
     Dosage: DOSE UNIT:UNITS PER KILOGRAM
     Route: 042
     Dates: start: 20070328

REACTIONS (5)
  - FEELING HOT [None]
  - FLUSHING [None]
  - NAUSEA [None]
  - OROPHARYNGEAL PAIN [None]
  - VISUAL IMPAIRMENT [None]
